FAERS Safety Report 7000792-1 (Version None)
Quarter: 2010Q3

REPORT INFORMATION
  Report Type: 
  Country: None (occurrence: None)
  Receive Date: 20100920
  Receipt Date: 20100329
  Transmission Date: 20110219
  Serious: No
  Sender: FDA-Public Use
  Company Number: US-ASTRAZENECA-2010SE13845

PATIENT
  Age: 55 Year
  Sex: Female
  Weight: 61.2 kg

DRUGS (5)
  1. SEROQUEL [Suspect]
     Indication: SUICIDE ATTEMPT
     Route: 048
     Dates: start: 20100101
  2. SEROQUEL [Suspect]
     Route: 048
     Dates: start: 20100101
  3. MEDICAL MARIJUANA [Concomitant]
  4. VALIUM [Concomitant]
  5. PAXIL [Concomitant]

REACTIONS (5)
  - ANXIETY [None]
  - DEPRESSION [None]
  - DRUG DOSE OMISSION [None]
  - DRUG EFFECT DECREASED [None]
  - INSOMNIA [None]
